FAERS Safety Report 11345320 (Version 1)
Quarter: 2015Q3

REPORT INFORMATION
  Report Type: Report from Study
  Country: US (occurrence: US)
  Receive Date: 20150806
  Receipt Date: 20150806
  Transmission Date: 20151125
  Serious: No
  Sender: FDA-Public Use
  Company Number: US-ABBVIE-15P-163-1411986-00

PATIENT
  Sex: Male

DRUGS (1)
  1. VIEKIRA PAK [Suspect]
     Active Substance: DASABUVIR\OMBITASVIR\PARITAPREVIR\RITONAVIR
     Indication: HEPATITIS C
     Dosage: 2 TABS QD OMBITASVIR/PATRAPREVIR/RITONAVIR AND 1 TAB BID OF DASABUVIR
     Route: 048
     Dates: start: 20150429

REACTIONS (1)
  - Insomnia [Not Recovered/Not Resolved]
